FAERS Safety Report 4806442-4 (Version None)
Quarter: 2005Q4

REPORT INFORMATION
  Report Type: 
  Country: None (occurrence: None)
  Receive Date: 20051019
  Receipt Date: 20051019
  Transmission Date: 20060501
  Serious: Yes (Other)
  Sender: FDA-Public Use
  Company Number: None

PATIENT
  Age: 52 Year
  Sex: Male

DRUGS (1)
  1. ORAQIX [Suspect]
     Indication: LOCAL ANAESTHESIA
     Dosage: 1/3 OF CARPULE   ONCE    DENTAL
     Route: 004
     Dates: start: 20051007, end: 20051007

REACTIONS (9)
  - ANXIETY [None]
  - DISCOMFORT [None]
  - DYSPNOEA [None]
  - FEELING ABNORMAL [None]
  - FEELING HOT [None]
  - NAUSEA [None]
  - PRURITUS [None]
  - SENSORY DISTURBANCE [None]
  - TREMOR [None]
